FAERS Safety Report 4399994-2 (Version None)
Quarter: 2004Q3

REPORT INFORMATION
  Report Type: 
  Country: None (occurrence: None)
  Receive Date: 20040716
  Receipt Date: 20040629
  Transmission Date: 20050211
  Serious: Yes (Hospitalization)
  Sender: FDA-Public Use
  Company Number: 2004S1001896

PATIENT
  Age: 12 Year
  Sex: Female

DRUGS (11)
  1. CYSTAGON [Suspect]
     Indication: CYSTINOSIS
     Dosage: 44 MG/KG QD, 88 MG/KG QD, 44 MG/KG QD ORAL
     Route: 048
     Dates: start: 19980411, end: 20030501
  2. CYSTAGON [Suspect]
     Indication: CYSTINOSIS
     Dosage: 44 MG/KG QD, 88 MG/KG QD, 44 MG/KG QD ORAL
     Route: 048
     Dates: start: 20030501, end: 20040601
  3. CYSTAGON [Suspect]
     Indication: CYSTINOSIS
     Dosage: 44 MG/KG QD, 88 MG/KG QD, 44 MG/KG QD ORAL
     Route: 048
     Dates: start: 20040601
  4. LAMOTRIGINE [Concomitant]
  5. PHENYTOIN [Concomitant]
  6. RANITIDINE [Concomitant]
  7. NIFEDIPINE [Concomitant]
  8. THYROXINE [Concomitant]
  9. ALFACALCIDOL [Concomitant]
  10. FOLIC ACID [Concomitant]
  11. CALCIUM CARBONATE [Concomitant]

REACTIONS (12)
  - AMNESIA [None]
  - ANAEMIA [None]
  - CONVULSION [None]
  - GASTROINTESTINAL DISORDER [None]
  - GASTROOESOPHAGEAL REFLUX DISEASE [None]
  - HAEMODIALYSIS [None]
  - MENTAL IMPAIRMENT [None]
  - NERVOUS SYSTEM DISORDER [None]
  - NUCLEAR MAGNETIC RESONANCE IMAGING BRAIN ABNORMAL [None]
  - PERITONEAL DIALYSIS [None]
  - TRANSPLANT [None]
  - VOMITING [None]
